FAERS Safety Report 24138848 (Version 1)
Quarter: 2024Q3

REPORT INFORMATION
  Report Type: Report from Study
  Country: US (occurrence: US)
  Receive Date: 20240725
  Receipt Date: 20240725
  Transmission Date: 20241017
  Serious: Yes (Other)
  Sender: ABBVIE
  Company Number: US-ABBVIE-5747832

PATIENT
  Age: 54 Year
  Sex: Female
  Weight: 65 kg

DRUGS (15)
  1. SKYRIZI [Suspect]
     Active Substance: RISANKIZUMAB-RZAA
     Indication: Crohn^s disease
     Route: 058
     Dates: start: 202312, end: 202312
  2. SKYRIZI [Suspect]
     Active Substance: RISANKIZUMAB-RZAA
     Route: 058
     Dates: start: 20240229, end: 20240229
  3. SKYRIZI [Suspect]
     Active Substance: RISANKIZUMAB-RZAA
     Route: 058
     Dates: start: 20240425, end: 20240425
  4. PRAVASTATIN [Concomitant]
     Active Substance: PRAVASTATIN
     Indication: Hyperlipidaemia
     Dosage: FREQUENCY: QHS
     Route: 048
  5. SERTRALINE [Concomitant]
     Active Substance: SERTRALINE HYDROCHLORIDE
     Indication: Depression
     Dosage: FREQUENCY: 9 AM
     Route: 048
  6. NALTREXONE [Concomitant]
     Active Substance: NALTREXONE
     Indication: Decreased appetite
     Route: 048
  7. TEMAZEPAM [Concomitant]
     Active Substance: TEMAZEPAM
     Indication: Insomnia
     Dosage: FREQUENCY: QHS
     Route: 048
  8. TEMAZEPAM [Concomitant]
     Active Substance: TEMAZEPAM
     Indication: Insomnia
     Dosage: FREQUENCY: Q HS
     Route: 048
  9. RINVOQ [Concomitant]
     Active Substance: UPADACITINIB
     Indication: Crohn^s disease
     Dosage: FREQUENCY: QHS
     Route: 048
  10. BUPROPION [Concomitant]
     Active Substance: BUPROPION
     Indication: Anxiety
     Dosage: FREQUENCY: Q AM
     Route: 048
  11. CLONAZEPAM [Concomitant]
     Active Substance: CLONAZEPAM
     Indication: Anxiety
     Dosage: FREQUENCY: DAILY PRN
     Route: 048
  12. VITAMIN B12 [Concomitant]
     Active Substance: CYANOCOBALAMIN
     Indication: Vitamin supplementation
     Dosage: DOSAGE: 1000 MCG/ML
  13. VITAMIN D [Concomitant]
     Active Substance: VITAMIN D NOS
     Indication: Product used for unknown indication
     Dosage: 1 TAB DAILY
     Route: 048
  14. MagSRT [Concomitant]
     Indication: Muscle spasms
     Route: 048
  15. ZOFRAN [Concomitant]
     Active Substance: ONDANSETRON HYDROCHLORIDE
     Indication: Product used for unknown indication
     Dosage: FREQUENCY: PRN
     Route: 048

REACTIONS (12)
  - Fatigue [Recovering/Resolving]
  - Brain fog [Recovering/Resolving]
  - Arthralgia [Unknown]
  - Pelvic pain [Unknown]
  - Balance disorder [Unknown]
  - Muscle twitching [Unknown]
  - Muscle atrophy [Unknown]
  - Dry eye [Unknown]
  - Back pain [Unknown]
  - Nasopharyngitis [Unknown]
  - Muscular weakness [Unknown]
  - Myalgia [Unknown]

NARRATIVE: CASE EVENT DATE: 20240425
